FAERS Safety Report 15049634 (Version 2)
Quarter: 2018Q3

REPORT INFORMATION
  Report Type: Spontaneous
  Country: US (occurrence: US)
  Receive Date: 20180622
  Receipt Date: 20180704
  Transmission Date: 20181010
  Serious: Yes (Other)
  Sender: FDA-Public Use
  Company Number: US-TEVA-2018-US-908710

PATIENT
  Sex: Female

DRUGS (1)
  1. ALENDRONATE SODIUM. [Suspect]
     Active Substance: ALENDRONATE SODIUM
     Route: 065
     Dates: end: 20180506

REACTIONS (6)
  - Nausea [Recovering/Resolving]
  - Adverse drug reaction [Not Recovered/Not Resolved]
  - Chest pain [Unknown]
  - Feeding disorder [Unknown]
  - Weight decreased [Recovering/Resolving]
  - Oropharyngeal pain [Unknown]
